FAERS Safety Report 7329348-8 (Version None)
Quarter: 2011Q1

REPORT INFORMATION
  Report Type: 
  Country: None (occurrence: None)
  Receive Date: 20110303
  Receipt Date: 20110225
  Transmission Date: 20110831
  Serious: Yes (Hospitalization)
  Sender: FDA-Public Use
  Company Number: FR-MERCK-1102FRA00166

PATIENT
  Age: 78 Year
  Sex: Male

DRUGS (2)
  1. VYTORIN [Suspect]
     Indication: HYPERCHOLESTEROLAEMIA
     Route: 048
  2. FLUINDIONE [Suspect]
     Indication: ATRIAL FIBRILLATION
     Route: 048
     Dates: start: 20070101, end: 20101117

REACTIONS (4)
  - INTERNATIONAL NORMALISED RATIO INCREASED [None]
  - HAEMATURIA [None]
  - OVERDOSE [None]
  - DRUG INTERACTION [None]
